FAERS Safety Report 21017863 (Version 1)
Quarter: 2022Q2

REPORT INFORMATION
  Report Type: Spontaneous
  Country: MX (occurrence: MX)
  Receive Date: 20220628
  Receipt Date: 20220628
  Transmission Date: 20220721
  Serious: Yes (Hospitalization)
  Sender: FDA-Public Use
  Company Number: MX-BAYER-2022P005913

PATIENT
  Sex: Male

DRUGS (1)
  1. REGORAFENIB [Suspect]
     Active Substance: REGORAFENIB
     Dosage: 80 MG, BID
     Route: 048

REACTIONS (4)
  - Dementia [None]
  - Disorientation [None]
  - Memory impairment [None]
  - Off label use [None]
